FAERS Safety Report 9919969 (Version 1)
Quarter: 2014Q1

REPORT INFORMATION
  Report Type: Spontaneous
  Country: GB (occurrence: GB)
  Receive Date: 20140224
  Receipt Date: 20140224
  Transmission Date: 20141002
  Serious: Yes (Death)
  Sender: FDA-Public Use
  Company Number: GB-CUBIST PHARMACEUTICAL, INC.-2014CBST000270

PATIENT
  Sex: 0

DRUGS (1)
  1. CUBICIN [Suspect]
     Indication: PRODUCT USED FOR UNKNOWN INDICATION
     Dosage: UNK, UNK UNK
     Route: 065

REACTIONS (2)
  - Eosinophilic pneumonia [Fatal]
  - Death [Fatal]
